FAERS Safety Report 18631091 (Version 10)
Quarter: 2021Q4

REPORT INFORMATION
  Report Type: Report from Study
  Country: US (occurrence: US)
  Receive Date: 20201217
  Receipt Date: 20211227
  Transmission Date: 20220303
  Serious: Yes (Hospitalization, Other)
  Sender: FDA-Public Use
  Company Number: US-SEATTLE GENETICS-2020SGN05517

PATIENT
  Age: 60 Year
  Sex: Female

DRUGS (7)
  1. TUCATINIB [Suspect]
     Active Substance: TUCATINIB
     Indication: Breast cancer female
     Dosage: UNK
     Route: 065
  2. TUCATINIB [Suspect]
     Active Substance: TUCATINIB
     Dosage: UNK
     Route: 065
  3. TUCATINIB [Suspect]
     Active Substance: TUCATINIB
     Dosage: UNK
     Route: 065
  4. TUCATINIB [Suspect]
     Active Substance: TUCATINIB
     Dosage: 300 MG, BID
     Route: 065
  5. TUCATINIB [Suspect]
     Active Substance: TUCATINIB
     Dosage: UNK
     Route: 065
  6. LOMOTIL                            /00034001/ [Concomitant]
  7. POTASSIUM [Concomitant]
     Active Substance: POTASSIUM

REACTIONS (18)
  - Intestinal obstruction [Unknown]
  - Pulmonary oedema [Unknown]
  - Brain neoplasm [Unknown]
  - Sensitive skin [Unknown]
  - Skin warm [Unknown]
  - Asthenia [Unknown]
  - Pulmonary physical examination [Unknown]
  - Fatigue [Recovering/Resolving]
  - Blood potassium decreased [Unknown]
  - Palmar-plantar erythrodysaesthesia syndrome [Unknown]
  - Anaemia [Not Recovered/Not Resolved]
  - Nausea [Unknown]
  - Diarrhoea [Unknown]
  - Biopsy [Unknown]
  - Product dose omission issue [Unknown]
  - Gamma radiation therapy [Unknown]
  - Central nervous system mass [Unknown]
  - Surgery [Unknown]

NARRATIVE: CASE EVENT DATE: 20201201
